FAERS Safety Report 5019961-5 (Version None)
Quarter: 2006Q2

REPORT INFORMATION
  Report Type: 
  Country: None (occurrence: None)
  Receive Date: 20060601
  Receipt Date: 20060523
  Transmission Date: 20061013
  Serious: Yes (Disabling)
  Sender: FDA-Public Use
  Company Number: HQWYE532724MAY06

PATIENT
  Age: 45 Year
  Sex: Female

DRUGS (4)
  1. ADVIL [Suspect]
     Indication: ARTHRALGIA
     Dosage: ORAL
     Route: 048
     Dates: end: 20060201
  2. ADVIL [Suspect]
     Indication: HEADACHE
     Dosage: ORAL
     Route: 048
     Dates: end: 20060201
  3. ADVIL [Suspect]
     Indication: JOINT SWELLING
     Dosage: ORAL
     Route: 048
     Dates: end: 20060201
  4. SYNTHROID [Concomitant]

REACTIONS (1)
  - RENAL FAILURE CHRONIC [None]
